FAERS Safety Report 23561652 (Version 2)
Quarter: 2024Q1

REPORT INFORMATION
  Report Type: Spontaneous
  Country: US (occurrence: US)
  Receive Date: 20240225
  Receipt Date: 20240310
  Transmission Date: 20240409
  Serious: Yes (Other)
  Sender: FDA-Public Use
  Company Number: US-AUROBINDO-AUR-APL-2024-007432

PATIENT
  Age: 47 Year
  Sex: Male

DRUGS (7)
  1. CLONAZEPAM [Suspect]
     Active Substance: CLONAZEPAM
     Indication: Epilepsy
     Dosage: UNK
     Route: 065
  2. LAMOTRIGINE [Suspect]
     Active Substance: LAMOTRIGINE
     Indication: Epilepsy
     Dosage: UNK
     Route: 065
  3. LEVETIRACETAM [Suspect]
     Active Substance: LEVETIRACETAM
     Indication: Epilepsy
     Dosage: UNK
     Route: 065
  4. TIAGABINE [Suspect]
     Active Substance: TIAGABINE
     Indication: Epilepsy
     Dosage: UNK
     Route: 065
  5. CREATINE MONOHYDRATE [Concomitant]
     Active Substance: CREATINE MONOHYDRATE
     Indication: Creatine deficiency syndrome
     Dosage: UNK 300 MG/KG/DAY
     Route: 065
  6. ARGININE [Concomitant]
     Active Substance: ARGININE
     Indication: Creatine deficiency syndrome
     Dosage: UNK 400 MG/KG/DAY
     Route: 065
  7. GLYCINE [Concomitant]
     Active Substance: GLYCINE
     Indication: Creatine deficiency syndrome
     Dosage: UNK 150 MG/KG/DAY
     Route: 065

REACTIONS (1)
  - Drug ineffective [Unknown]
